FAERS Safety Report 7926960-X (Version None)
Quarter: 2011Q4

REPORT INFORMATION
  Report Type: 
  Country: None (occurrence: None)
  Receive Date: 20111118
  Receipt Date: 20111110
  Transmission Date: 20120403
  Serious: Yes (Other)
  Sender: FDA-Public Use
  Company Number: BE-JNJFOC-20111106940

PATIENT
  Sex: Male

DRUGS (5)
  1. OXYBUTYNIN [Concomitant]
  2. ALLOPURINOL [Concomitant]
  3. BENZODIAZEPINE DERIVATIVES [Concomitant]
     Indication: SLEEP DISORDER
  4. PHENELZINE SULFATE [Interacting]
     Indication: MAJOR DEPRESSION
     Route: 048
     Dates: start: 20110831, end: 20111011
  5. IBUPROFEN [Suspect]
     Indication: GOUT
     Route: 065

REACTIONS (2)
  - HYPERTENSION [None]
  - DRUG INTERACTION [None]
